FAERS Safety Report 4682958-9 (Version None)
Quarter: 2005Q2

REPORT INFORMATION
  Report Type: 
  Country: None (occurrence: None)
  Receive Date: 20050602
  Receipt Date: 20050318
  Transmission Date: 20051028
  Serious: No
  Sender: FDA-Public Use
  Company Number: USA050393577

PATIENT
  Sex: Female

DRUGS (4)
  1. CYMBALTA [Suspect]
     Dosage: 60 MG DAY
     Dates: start: 20050101, end: 20050315
  2. TRAZODONE [Concomitant]
  3. GEODON [Concomitant]
  4. SEROQUEL [Concomitant]

REACTIONS (4)
  - HANGOVER [None]
  - HYPERHIDROSIS [None]
  - PRURITUS [None]
  - VOMITING [None]
